FAERS Safety Report 5086767-0 (Version None)
Quarter: 2006Q3

REPORT INFORMATION
  Report Type: 
  Country: None (occurrence: None)
  Receive Date: 20060823
  Receipt Date: 20060817
  Transmission Date: 20061208
  Serious: Yes (Hospitalization)
  Sender: FDA-Public Use
  Company Number: 2006UW16451

PATIENT
  Age: 636 Month
  Sex: Male
  Weight: 72.6 kg

DRUGS (4)
  1. SEROQUEL [Suspect]
     Route: 048
  2. DEPAKOTE [Concomitant]
  3. LOPRESSOR [Concomitant]
  4. UNSPECIFIED THYROID MEDICATION [Concomitant]

REACTIONS (2)
  - DYSPNOEA [None]
  - PANIC ATTACK [None]
